FAERS Safety Report 4432318-0 (Version None)
Quarter: 2004Q3

REPORT INFORMATION
  Report Type: 
  Country: None (occurrence: None)
  Receive Date: 20040820
  Receipt Date: 20040809
  Transmission Date: 20050211
  Serious: Yes (Other)
  Sender: FDA-Public Use
  Company Number: 2004-BP-05349BP

PATIENT
  Age: 22 Year
  Sex: Female

DRUGS (5)
  1. VIRAMUNE [Suspect]
     Indication: HIV INFECTION
     Dosage: 200 MG (2 IN 1D), PO
     Route: 048
     Dates: start: 20040129, end: 20040702
  2. EFAVIRENZ (EFAVIRENZ) [Suspect]
     Indication: HIV INFECTION
     Dosage: 600 MG , PO
     Route: 048
     Dates: start: 20030508, end: 20031204
  3. TENOFOVIR (TENOFOVIR) [Suspect]
     Indication: HIV INFECTION
     Dosage: 300 MG (1 IN 1 D), PO
     Route: 048
     Dates: start: 20030508, end: 20031204
  4. DIDANOSINE (DIDANOSINE) [Suspect]
     Indication: HIV INFECTION
     Dosage: 250 MG (1 IN 1 D), PO
     Route: 048
     Dates: start: 20030508, end: 20031204
  5. COMBIVIR [Suspect]
     Indication: HIV INFECTION
     Dosage: 300/600 Q DAY , PO
     Route: 048
     Dates: start: 20040129, end: 20040702

REACTIONS (3)
  - DRUG EXPOSURE DURING PREGNANCY [None]
  - PREMATURE SEPARATION OF PLACENTA [None]
  - STILLBIRTH [None]
